FAERS Safety Report 23395315 (Version 3)
Quarter: 2024Q1

REPORT INFORMATION
  Report Type: Spontaneous
  Country: US (occurrence: US)
  Receive Date: 20240112
  Receipt Date: 20240215
  Transmission Date: 20240410
  Serious: Yes (Hospitalization, Other)
  Sender: FDA-Public Use
  Company Number: US-Calliditas-2024CAL00017

PATIENT
  Age: 75 Year
  Sex: Male

DRUGS (4)
  1. TARPEYO [Suspect]
     Active Substance: BUDESONIDE
     Indication: IgA nephropathy
     Dosage: 16MG (4MG CAPSULES) ONCE DAILY
     Route: 048
     Dates: start: 20230915
  2. LEVOTHYROXINE [Concomitant]
     Active Substance: LEVOTHYROXINE\LEVOTHYROXINE SODIUM
  3. PANTOPRAZOLE [Concomitant]
     Active Substance: PANTOPRAZOLE
  4. LISINOPRIL [Concomitant]
     Active Substance: LISINOPRIL

REACTIONS (46)
  - Gastrointestinal disorder [Not Recovered/Not Resolved]
  - Peripheral swelling [Not Recovered/Not Resolved]
  - Swelling face [Unknown]
  - Fluid retention [Not Recovered/Not Resolved]
  - Hypertension [Recovered/Resolved]
  - Abdominal distension [Unknown]
  - Drug ineffective [Unknown]
  - Faeces soft [Not Recovered/Not Resolved]
  - Back pain [Not Recovered/Not Resolved]
  - Dry throat [Unknown]
  - Chest discomfort [Not Recovered/Not Resolved]
  - Feeling cold [Not Recovered/Not Resolved]
  - Dyspnoea [Not Recovered/Not Resolved]
  - Depressed mood [Unknown]
  - Incontinence [Unknown]
  - Oropharyngeal pain [Unknown]
  - Thirst [Unknown]
  - Weight fluctuation [Unknown]
  - Anal incontinence [Unknown]
  - Product dose omission issue [Unknown]
  - Diarrhoea [Not Recovered/Not Resolved]
  - Vision blurred [Unknown]
  - Diplopia [Unknown]
  - Muscle spasms [Not Recovered/Not Resolved]
  - General physical health deterioration [Unknown]
  - Flatulence [Not Recovered/Not Resolved]
  - Paraesthesia [Not Recovered/Not Resolved]
  - Chest pain [Unknown]
  - Joint swelling [Not Recovered/Not Resolved]
  - Fatigue [Unknown]
  - Drug interaction [Unknown]
  - Decreased appetite [Unknown]
  - Pneumonia [Unknown]
  - End stage renal disease [Unknown]
  - Ocular discomfort [Unknown]
  - Heart rate increased [Unknown]
  - Anxiety [Not Recovered/Not Resolved]
  - Disturbance in attention [Not Recovered/Not Resolved]
  - Dizziness [Unknown]
  - Hypertensive urgency [Unknown]
  - Renal pain [Unknown]
  - Epistaxis [Unknown]
  - Nausea [Unknown]
  - Pruritus [Unknown]
  - Muscular weakness [Not Recovered/Not Resolved]
  - Vitreous floaters [Unknown]

NARRATIVE: CASE EVENT DATE: 20230923
